FAERS Safety Report 9398561 (Version 2)
Quarter: 2013Q3

REPORT INFORMATION
  Report Type: Spontaneous
  Country: US (occurrence: US)
  Receive Date: 20130712
  Receipt Date: 20130909
  Transmission Date: 20140515
  Serious: Yes (Hospitalization)
  Sender: FDA-Public Use
  Company Number: US-ELI_LILLY_AND_COMPANY-US201307000913

PATIENT
  Age: 62 Year
  Sex: Male

DRUGS (1)
  1. HUMULIN NPH [Suspect]
     Indication: TYPE 2 DIABETES MELLITUS
     Dosage: 160 U, BID
     Dates: start: 2000

REACTIONS (3)
  - Hyperglycaemia [Recovered/Resolved]
  - Wrong technique in drug usage process [Recovered/Resolved]
  - Glycosylated haemoglobin increased [Unknown]
